FAERS Safety Report 5056382-3 (Version None)
Quarter: 2006Q3

REPORT INFORMATION
  Report Type: 
  Country: None (occurrence: None)
  Receive Date: 20060720
  Receipt Date: 20051123
  Transmission Date: 20061208
  Serious: Yes (Hospitalization)
  Sender: FDA-Public Use
  Company Number: US-BRISTOL-MYERS SQUIBB COMPANY-13193990

PATIENT
  Age: 38 Year
  Sex: Female
  Weight: 106 kg

DRUGS (5)
  1. ERBITUX [Suspect]
     Indication: BREAST CANCER METASTATIC
     Dosage: INITIATED ON 01-SEP-2005/INTERRUPTED (DATE NOT REPORTED).
     Route: 042
     Dates: start: 20050908, end: 20050908
  2. CARBOPLATIN [Suspect]
     Indication: BREAST CANCER METASTATIC
     Dosage: INITIATED ON 01-SEP-2005/INTERRUPTED (DATE NOT REPORTED).
     Route: 042
     Dates: start: 20050908, end: 20050908
  3. CPT-11 [Suspect]
     Indication: BREAST CANCER METASTATIC
     Dosage: INITIATED ON 01-SEP-2005/INTERRUPTED (DATE NOT REPORTED).
     Route: 042
     Dates: start: 20050908, end: 20050908
  4. ERYTHROMYCIN OINTMENT [Concomitant]
     Indication: RASH
  5. ATIVAN [Concomitant]
     Indication: PROPHYLAXIS

REACTIONS (4)
  - ABDOMINAL PAIN [None]
  - DEHYDRATION [None]
  - DIARRHOEA [None]
  - FEBRILE NEUTROPENIA [None]
